FAERS Safety Report 10034981 (Version 1)
Quarter: 2014Q1

REPORT INFORMATION
  Report Type: Spontaneous
  Country: US (occurrence: None)
  Receive Date: 20140321
  Receipt Date: 20140321
  Transmission Date: 20141002
  Serious: Yes (Other)
  Sender: FDA-Public Use
  Company Number: UTC-045855

PATIENT
  Age: 49 Year
  Sex: Male

DRUGS (4)
  1. TYVASO (0.6 MILLIGRAM/MILLILITERS, AEROSOL FOR INHALATION) (TREPROSTINIL SODIUM) [Suspect]
     Indication: PULMONARY ARTERIAL HYPERTENSION
     Dosage: 120MCG (30MCG, 4 IN 1 D) INHALATION
     Route: 055
     Dates: start: 20140206, end: 20140301
  2. KETAURUS *ANR=BRUSEBTAB( [Concomitant]
  3. ADCIRCA (TADALAFIL) [Concomitant]
  4. ASPIRIN [Concomitant]

REACTIONS (1)
  - Death [None]
